FAERS Safety Report 4875322-0 (Version None)
Quarter: 2006Q1

REPORT INFORMATION
  Report Type: 
  Country: None (occurrence: None)
  Receive Date: 20060109
  Receipt Date: 20051130
  Transmission Date: 20060701
  Serious: Yes (Death, Hospitalization)
  Sender: FDA-Public Use
  Company Number: US-MERCK-0512USA00099

PATIENT
  Age: 92 Year
  Sex: Female
  Weight: 50 kg

DRUGS (5)
  1. VIOXX [Suspect]
     Indication: PAIN IN EXTREMITY
     Route: 048
     Dates: start: 20021109, end: 20040715
  2. DIAMOX [Concomitant]
     Route: 048
  3. METOPROLOL [Concomitant]
     Route: 065
  4. ZYRTEC [Concomitant]
     Route: 065
  5. HYDROCHLOROTHIAZIDE [Concomitant]
     Route: 065

REACTIONS (14)
  - BLOOD POTASSIUM DECREASED [None]
  - CEREBROVASCULAR ACCIDENT [None]
  - DEEP VEIN THROMBOSIS [None]
  - DIZZINESS [None]
  - EMBOLIC CEREBRAL INFARCTION [None]
  - GOITRE [None]
  - HEAD DISCOMFORT [None]
  - HYPERTENSION [None]
  - MITRAL VALVE INCOMPETENCE [None]
  - PERIPHERAL ISCHAEMIA [None]
  - PULMONARY HYPERTENSION [None]
  - SENSATION OF HEAVINESS [None]
  - TRICUSPID VALVE INCOMPETENCE [None]
  - VERTIGO [None]
